FAERS Safety Report 10188996 (Version 1)
Quarter: 2014Q2

REPORT INFORMATION
  Report Type: Spontaneous
  Country: SE (occurrence: SE)
  Receive Date: 20140522
  Receipt Date: 20140522
  Transmission Date: 20141212
  Serious: Yes (Hospitalization, Other)
  Sender: FDA-Public Use
  Company Number: SE-PFIZER INC-2014135372

PATIENT
  Age: 40 Year
  Sex: Female

DRUGS (5)
  1. DALACIN [Suspect]
     Indication: PROPIONIBACTERIUM INFECTION
     Dosage: UNK
     Route: 048
     Dates: start: 20140302
  2. BEHEPAN [Concomitant]
     Dosage: UNK
  3. FOLACIN [Concomitant]
     Dosage: UNK
  4. KEPPRA [Concomitant]
     Dosage: UNK
  5. SYNARELA [Concomitant]
     Dosage: UNK

REACTIONS (3)
  - Haemorrhagic vasculitis [Recovered/Resolved]
  - Urticaria [Recovered/Resolved]
  - Hypoaesthesia oral [Recovered/Resolved]
